FAERS Safety Report 11250317 (Version 6)
Quarter: 2016Q1

REPORT INFORMATION
  Report Type: Spontaneous
  Country: US (occurrence: US)
  Receive Date: 20150708
  Receipt Date: 20160118
  Transmission Date: 20160525
  Serious: Yes (Hospitalization, Congenital Anomaly, Other)
  Sender: FDA-Public Use
  Company Number: US-ELI_LILLY_AND_COMPANY-US201507000292

PATIENT
  Age: 12 Year

DRUGS (1)
  1. PROZAC [Suspect]
     Active Substance: FLUOXETINE HYDROCHLORIDE
     Indication: PRODUCT USED FOR UNKNOWN INDICATION
     Dosage: UNK, UNKNOWN
     Route: 064

REACTIONS (7)
  - Exposure during breast feeding [Unknown]
  - Kawasaki^s disease [Recovered/Resolved]
  - Intracardiac thrombus [Recovered/Resolved]
  - Foetal exposure during pregnancy [Recovered/Resolved]
  - Persistent foetal circulation [Unknown]
  - Hypertension [Recovered/Resolved]
  - Coronary artery dilatation [Unknown]

NARRATIVE: CASE EVENT DATE: 20120403
